FAERS Safety Report 8921483 (Version 1)
Quarter: 2012Q4

REPORT INFORMATION
  Report Type: 
  Country: BR (occurrence: BR)
  Receive Date: 20121122
  Receipt Date: 20121122
  Transmission Date: 20130627
  Serious: Yes (Other)
  Sender: FDA-Public Use
  Company Number: PHHY2012BR105517

PATIENT
  Age: 56 Year
  Sex: Female

DRUGS (8)
  1. DIOVAN TRIPLE [Suspect]
     Indication: HYPERTENSION
     Dosage: 1 DF, daily
     Route: 048
  2. SIMVASTATIN [Suspect]
     Indication: BLOOD CHOLESTEROL INCREASED
     Dosage: 1 DF, daily
  3. OMEPRAZOLE [Suspect]
     Indication: GASTRITIS PROPHYLAXIS
     Dosage: 40 mg, UNK
  4. RIVOTRIL [Suspect]
     Indication: SLEEP DISORDER
     Dosage: 1 DF, daily
  5. PLAVIX [Suspect]
     Indication: ANTICOAGULANT THERAPY
     Dosage: 1 DF, daily
  6. AAS [Suspect]
     Indication: ANTICOAGULANT THERAPY
     Dosage: 1 DF, BID
  7. GLIFAGE [Suspect]
     Indication: DIABETES MELLITUS
     Dosage: 1 DF, daily
  8. BURINAX [Suspect]
     Indication: DYSURIA
     Dosage: 1 DF, daily

REACTIONS (5)
  - Diabetes mellitus [Unknown]
  - Blood cholesterol increased [Unknown]
  - Oedema peripheral [Not Recovered/Not Resolved]
  - Eyelid oedema [Not Recovered/Not Resolved]
  - Abdominal pain upper [Unknown]
